FAERS Safety Report 8243117-6 (Version None)
Quarter: 2012Q1

REPORT INFORMATION
  Report Type: 
  Country: None (occurrence: None)
  Receive Date: 20120329
  Receipt Date: 20120326
  Transmission Date: 20120608
  Serious: No
  Sender: FDA-Public Use
  Company Number: US-TEVA-330117USA

PATIENT
  Sex: Male
  Weight: 86.26 kg

DRUGS (5)
  1. AZILECT [Suspect]
     Indication: PARKINSON'S DISEASE
     Dosage: 1 MILLIGRAM;
     Route: 048
     Dates: start: 20120227
  2. CARBIDOPA/ LEVADOPA IR [Concomitant]
  3. CARBIDOPA /LEVODOPA SR [Concomitant]
  4. REQUIP [Concomitant]
  5. COMTAN [Concomitant]

REACTIONS (1)
  - SLEEP DISORDER [None]
